FAERS Safety Report 6613681-9 (Version None)
Quarter: 2010Q1

REPORT INFORMATION
  Report Type: 
  Country: None (occurrence: None)
  Receive Date: 20100226
  Receipt Date: 20100223
  Transmission Date: 20100710
  Serious: Yes (Hospitalization)
  Sender: FDA-Public Use
  Company Number: 2010000496

PATIENT
  Age: 49 Year
  Sex: Female

DRUGS (1)
  1. ACTIQ [Suspect]
     Indication: CROHN'S DISEASE
     Dosage: 4800 MCG (1200 MCG, 4 IN 1 D), BU
     Route: 002
     Dates: start: 20070101

REACTIONS (3)
  - GASTROINTESTINAL DISORDER [None]
  - INFLAMMATION [None]
  - PANCREATIC NEOPLASM [None]
